FAERS Safety Report 21344849 (Version 1)
Quarter: 2022Q3

REPORT INFORMATION
  Report Type: Other
  Country: None (occurrence: CN)
  Receive Date: 20220916
  Receipt Date: 20220916
  Transmission Date: 20221027
  Serious: Yes (Other)
  Sender: FDA-Public Use
  Company Number: CN-B.Braun Medical Inc.-2132942

PATIENT
  Age: 19 Year
  Sex: Male

DRUGS (1)
  1. MEROPENEM\SODIUM CHLORIDE [Suspect]
     Active Substance: MEROPENEM\SODIUM CHLORIDE

REACTIONS (2)
  - Delirium [Recovered/Resolved]
  - Muscle spasms [Recovered/Resolved]
